FAERS Safety Report 4400069-4 (Version None)
Quarter: 2004Q3

REPORT INFORMATION
  Report Type: 
  Country: None (occurrence: None)
  Receive Date: 20040714
  Receipt Date: 20040705
  Transmission Date: 20050211
  Serious: Yes (Life-Threatening, Hospitalization)
  Sender: FDA-Public Use
  Company Number: 2004220836FR

PATIENT
  Age: 51 Year
  Sex: Female
  Weight: 77 kg

DRUGS (6)
  1. PHARMORUBICIN RD (EPIRUBICIN HYDROCHLORIDE) POWDER, STERILE [Suspect]
     Indication: BREAST CANCER FEMALE
     Dosage: 183 MG, CYCLIC, IV
     Route: 042
     Dates: start: 20030723, end: 20031105
  2. FLUOROURACIL [Suspect]
     Indication: BREAST CANCER FEMALE
     Dosage: 915 MG, CYCLIC, IV
     Route: 042
     Dates: start: 20030723, end: 20031125
  3. CYCLOPHOSPHAMIDE [Suspect]
     Indication: BREAST CANCER FEMALE
     Dosage: 915 MG, CYCLIC, IV
     Route: 042
     Dates: start: 20030723, end: 20031125
  4. ARMIDEX ^ZENECA^ [Concomitant]
  5. DAFLON (DIOSMIN) [Concomitant]
  6. LEVOTHYROXINE SODIUM [Concomitant]

REACTIONS (16)
  - AGITATION [None]
  - ANXIETY [None]
  - ARRHYTHMIA [None]
  - ASPARTATE AMINOTRANSFERASE INCREASED [None]
  - ATRIAL NATRIURETIC PEPTIDE INCREASED [None]
  - CARDIOMYOPATHY [None]
  - CARDIOTOXICITY [None]
  - CHEST DISCOMFORT [None]
  - CONVULSION [None]
  - DYSPNOEA [None]
  - HEPATOCELLULAR DAMAGE [None]
  - LIVER DISORDER [None]
  - PLEURAL EFFUSION [None]
  - PULMONARY EMBOLISM [None]
  - TROPONIN INCREASED [None]
  - VENTRICULAR DYSFUNCTION [None]
